FAERS Safety Report 10162398 (Version 1)
Quarter: 2014Q2

REPORT INFORMATION
  Report Type: Spontaneous
  Country: CH (occurrence: None)
  Receive Date: 20140507
  Receipt Date: 20140507
  Transmission Date: 20141212
  Serious: Yes (Other)
  Sender: FDA-Public Use
  Company Number: 20140259

PATIENT
  Age: 30 Year
  Sex: Female

DRUGS (1)
  1. FERINJECT [Suspect]
     Dates: start: 20140407, end: 20140407

REACTIONS (3)
  - Vertigo [None]
  - Hyperhidrosis [None]
  - Musculoskeletal pain [None]
